FAERS Safety Report 18542409 (Version 2)
Quarter: 2020Q4

REPORT INFORMATION
  Report Type: Spontaneous
  Country: US (occurrence: US)
  Receive Date: 20201124
  Receipt Date: 20201215
  Transmission Date: 20210114
  Serious: Yes (Death)
  Sender: FDA-Public Use
  Company Number: US-TEVA-2020-US-1851413

PATIENT
  Sex: Female

DRUGS (22)
  1. AZITHROMYCIN ANHYDROUS. [Suspect]
     Active Substance: AZITHROMYCIN ANHYDROUS
     Dosage: DURING THIRD PHASE AL2
     Route: 065
  2. LEVOFLOXACIN. [Suspect]
     Active Substance: LEVOFLOXACIN
     Dosage: DURING THIRD PHASE AL2
     Route: 065
  3. CEFEPIME [Suspect]
     Active Substance: CEFEPIME HYDROCHLORIDE
     Indication: ANTIBIOTIC THERAPY
     Dosage: DURING SECOND PHASE (HCT)
     Route: 065
  4. CEFEPIME [Suspect]
     Active Substance: CEFEPIME HYDROCHLORIDE
     Indication: ANTIBIOTIC THERAPY
     Dosage: DURING THIRD PHASE AL2
     Route: 065
  5. MEROPENEM. [Suspect]
     Active Substance: MEROPENEM
     Dosage: DURING REMISSION AFTER HCT
     Route: 065
  6. AMIKACIN. [Suspect]
     Active Substance: AMIKACIN
     Dosage: DURING SECOND PHASE (HCT)
     Route: 065
  7. LEVOFLOXACIN. [Suspect]
     Active Substance: LEVOFLOXACIN
     Dosage: DURING REMISSION AFTER HCT
     Route: 065
  8. METRONIDAZOLE. [Suspect]
     Active Substance: METRONIDAZOLE
     Indication: ANTIBIOTIC THERAPY
     Dosage: DURING FIRST INDUCTION CHEMOTHERAPY AL1
     Route: 065
  9. CEFEPIME [Suspect]
     Active Substance: CEFEPIME HYDROCHLORIDE
     Indication: ANTIBIOTIC THERAPY
     Dosage: DURING REMISSION AFTER HCT
     Route: 065
  10. LEVOFLOXACIN. [Suspect]
     Active Substance: LEVOFLOXACIN
     Indication: ANTIBIOTIC THERAPY
     Dosage: DURING FIRST INDUCTION CHEMOTHERAPY AL1
     Route: 065
  11. AMIKACIN. [Suspect]
     Active Substance: AMIKACIN
     Dosage: DURING REMISSION AFTER HCT
     Route: 065
  12. VANCOMYCIN [Suspect]
     Active Substance: VANCOMYCIN
     Indication: ANTIBIOTIC THERAPY
     Dosage: DURING SECOND PHASE (HCT)
     Route: 042
  13. AMIKACIN. [Suspect]
     Active Substance: AMIKACIN
     Indication: ANTIBIOTIC THERAPY
     Dosage: DURING FIRST INDUCTION CHEMOTHERAPY AL1
     Route: 065
  14. CIPROFLOXACIN. [Suspect]
     Active Substance: CIPROFLOXACIN
     Indication: ANTIBIOTIC THERAPY
     Dosage: DURING REMISSION AFTER HCT PHASE
     Route: 065
  15. LEVOFLOXACIN. [Suspect]
     Active Substance: LEVOFLOXACIN
     Dosage: DURING SECOND PHASE (HCT)
     Route: 065
  16. CEFEPIME [Suspect]
     Active Substance: CEFEPIME HYDROCHLORIDE
     Indication: ANTIBIOTIC THERAPY
     Dosage: DURING FIRST INDUCTION CHEMOTHERAPY AL1
     Route: 065
  17. VANCOMYCIN [Suspect]
     Active Substance: VANCOMYCIN
     Indication: ANTIBIOTIC THERAPY
     Dosage: DURING FIRST INDUCTION CHEMOTHERAPY AL1
     Route: 042
  18. VANCOMYCIN [Suspect]
     Active Substance: VANCOMYCIN
     Indication: ANTIBIOTIC THERAPY
     Dosage: DURING THIRD PHASE AL2
     Route: 042
  19. TRIMETHOPRIM/SULFAMETHOXAZOLE [Suspect]
     Active Substance: SULFAMETHOXAZOLE\TRIMETHOPRIM
     Indication: ANTIBIOTIC THERAPY
     Dosage: DURING REMISSION AFTER HCT PHASE
     Route: 065
  20. LEVOFLOXACIN. [Suspect]
     Active Substance: LEVOFLOXACIN
     Dosage: IN BETWEEN THE AL1 AND HCT PHASE
     Route: 065
  21. MEROPENEM. [Suspect]
     Active Substance: MEROPENEM
     Indication: ANTIBIOTIC THERAPY
     Dosage: DURING SECOND PHASE (HCT)
     Route: 065
  22. AZITHROMYCIN ANHYDROUS. [Suspect]
     Active Substance: AZITHROMYCIN ANHYDROUS
     Indication: ANTIBIOTIC THERAPY
     Dosage: DURING FIRST INDUCTION CHEMOTHERAPY AL1
     Route: 065

REACTIONS (2)
  - Clostridium difficile colitis [Fatal]
  - Dysbiosis [Fatal]
